FAERS Safety Report 19805633 (Version 2)
Quarter: 2021Q3

REPORT INFORMATION
  Report Type: Report from Study
  Country: US (occurrence: US)
  Receive Date: 20210908
  Receipt Date: 20210923
  Transmission Date: 20211014
  Serious: Yes (Hospitalization, Disabling, Other)
  Sender: FDA-Public Use
  Company Number: US-SA-2021SA293713

PATIENT
  Age: 53 Year
  Sex: Female

DRUGS (1)
  1. TERIFLUNOMIDE. [Suspect]
     Active Substance: TERIFLUNOMIDE
     Indication: MULTIPLE SCLEROSIS
     Dosage: 14 MG, QD
     Route: 048
     Dates: start: 20210501

REACTIONS (4)
  - Generalised tonic-clonic seizure [Unknown]
  - Impaired driving ability [Unknown]
  - Hospitalisation [Unknown]
  - Amnesia [Unknown]

NARRATIVE: CASE EVENT DATE: 2021
